FAERS Safety Report 14354579 (Version 1)
Quarter: 2018Q1

REPORT INFORMATION
  Report Type: Spontaneous
  Country: US (occurrence: US)
  Receive Date: 20180104
  Receipt Date: 20180104
  Transmission Date: 20180509
  Serious: No
  Sender: FDA-Public Use
  Company Number: None

PATIENT
  Age: 3 Year
  Sex: Female

DRUGS (14)
  1. LASIX [Concomitant]
     Active Substance: FUROSEMIDE
  2. REVATIO [Concomitant]
     Active Substance: SILDENAFIL CITRATE
  3. ASPIRIN. [Concomitant]
     Active Substance: ASPIRIN
  4. ALDACTONE [Concomitant]
     Active Substance: SPIRONOLACTONE
  5. SINGULAIR [Concomitant]
     Active Substance: MONTELUKAST SODIUM
  6. ENALAPRIL [Concomitant]
     Active Substance: ENALAPRIL
  7. OMEPRAZOLE. [Concomitant]
     Active Substance: OMEPRAZOLE
  8. AMOXICILLIN. [Concomitant]
     Active Substance: AMOXICILLIN
  9. FLONASE [Concomitant]
     Active Substance: FLUTICASONE PROPIONATE
  10. TRACLEER [Suspect]
     Active Substance: BOSENTAN
     Indication: PULMONARY ARTERIAL HYPERTENSION
     Dosage: 62.5MG 1/2 TAB QD ORAL
     Route: 048
     Dates: start: 201608, end: 20170427
  11. ALBUTEROL. [Concomitant]
     Active Substance: ALBUTEROL
  12. ALL DAY ALLERGY [Concomitant]
     Active Substance: CETIRIZINE HYDROCHLORIDE
  13. EPANED [Concomitant]
     Active Substance: ENALAPRIL MALEATE
  14. QVAR [Concomitant]
     Active Substance: BECLOMETHASONE DIPROPIONATE

REACTIONS (4)
  - Abdominal pain upper [None]
  - Irritability [None]
  - Hyperhidrosis [None]
  - Liver function test increased [None]

NARRATIVE: CASE EVENT DATE: 20180103
